FAERS Safety Report 8337813-X (Version None)
Quarter: 2012Q2

REPORT INFORMATION
  Report Type: 
  Country: None (occurrence: None)
  Receive Date: 20120504
  Receipt Date: 20120502
  Transmission Date: 20120825
  Serious: Yes (Other)
  Sender: FDA-Public Use
  Company Number: RU-GLAXOSMITHKLINE-B0799468A

PATIENT
  Age: 65 Year
  Sex: Male

DRUGS (3)
  1. UNKNOWN MEDICATION [Concomitant]
     Indication: PRODUCT USED FOR UNKNOWN INDICATION
     Route: 065
  2. ARIXTRA [Suspect]
     Route: 058
     Dates: start: 20120401, end: 20120401
  3. CARDIOMAGNYL [Concomitant]
     Route: 048
     Dates: start: 20120401, end: 20120401

REACTIONS (1)
  - HAEMORRHAGIC STROKE [None]
